FAERS Safety Report 9701146 (Version 2)
Quarter: 2013Q4

REPORT INFORMATION
  Report Type: Spontaneous
  Country: US (occurrence: US)
  Receive Date: 20131121
  Receipt Date: 20131121
  Transmission Date: 20140711
  Serious: Yes (Disabling, Other)
  Sender: FDA-Public Use
  Company Number: US-GILEAD-2008-0015593

PATIENT
  Sex: Female
  Weight: 94.35 kg

DRUGS (10)
  1. LETAIRIS [Suspect]
     Indication: PULMONARY ARTERIAL HYPERTENSION
     Route: 048
     Dates: start: 20070917, end: 20080303
  2. LASIX [Concomitant]
     Route: 048
  3. DILTIAZEM [Concomitant]
     Route: 048
     Dates: start: 20070725
  4. MICARDIS [Concomitant]
     Route: 048
  5. K-DUR [Concomitant]
     Route: 048
     Dates: start: 20080213
  6. MUCOMYST [Concomitant]
     Dates: start: 20080122
  7. PREDNISONE [Concomitant]
     Route: 048
     Dates: start: 20070831
  8. VOSPIRE ER [Concomitant]
     Route: 048
  9. PROTONIX [Concomitant]
     Route: 048
  10. TEMAZEPAM [Concomitant]
     Route: 048

REACTIONS (2)
  - Weight increased [None]
  - Oedema peripheral [None]
